FAERS Safety Report 15762851 (Version 14)
Quarter: 2020Q1

REPORT INFORMATION
  Report Type: Report from Study
  Country: CA (occurrence: CA)
  Receive Date: 20181226
  Receipt Date: 20200207
  Transmission Date: 20200409
  Serious: Yes (Other)
  Sender: FDA-Public Use
  Company Number: CA-PFIZER INC-2018527783

PATIENT
  Age: 38 Year
  Sex: Female

DRUGS (15)
  1. ENTYVIO [Suspect]
     Active Substance: VEDOLIZUMAB
     Dosage: 300 MG, CYCLIC (EVERY 4 WEEKS)
     Route: 042
     Dates: start: 20181029
  2. ENTYVIO [Suspect]
     Active Substance: VEDOLIZUMAB
     Dosage: 300 MG, CYCLIC (EVERY 4 WEEKS)
     Route: 042
  3. CAL/MAG CITRATE [Concomitant]
     Dosage: UNK
  4. CREON [Concomitant]
     Active Substance: PANCRELIPASE AMYLASE\PANCRELIPASE LIPASE\PANCRELIPASE PROTEASE
     Dosage: UNK
  5. VITAMIN B12 [Concomitant]
     Active Substance: CYANOCOBALAMIN
     Dosage: UNK
  6. VITAMIN C [Concomitant]
     Active Substance: ASCORBIC ACID
     Dosage: UNK
  7. PANTOLOC [Suspect]
     Active Substance: PANTOPRAZOLE SODIUM
     Dosage: UNK
  8. SELENIUM [Concomitant]
     Active Substance: SELENIUM
     Dosage: UNK
  9. PRENATAL VITAMINS [Concomitant]
     Active Substance: VITAMINS
     Dosage: UNK
  10. ENTYVIO [Suspect]
     Active Substance: VEDOLIZUMAB
     Dosage: 300 MG, CYCLIC (EVERY 4 WEEKS)
     Route: 042
  11. VIT D [Concomitant]
     Active Substance: VITAMIN D NOS
     Dosage: UNK
  12. DOMPERIDONE [Concomitant]
     Active Substance: DOMPERIDONE
     Dosage: UNK
  13. ENTYVIO [Suspect]
     Active Substance: VEDOLIZUMAB
     Indication: COLITIS ULCERATIVE
     Dosage: 300 MG, UNK
     Route: 042
     Dates: start: 20180622
  14. TURMERIC [Concomitant]
     Active Substance: HERBALS\TURMERIC
     Dosage: UNK
  15. ENTYVIO [Suspect]
     Active Substance: VEDOLIZUMAB
     Dosage: 300 MG, CYCLIC (EVERY 4 WEEKS)
     Route: 042

REACTIONS (4)
  - Throat irritation [Recovered/Resolved]
  - Pharyngitis streptococcal [Not Recovered/Not Resolved]
  - Pancreatitis [Not Recovered/Not Resolved]
  - Eye ulcer [Not Recovered/Not Resolved]

NARRATIVE: CASE EVENT DATE: 20181212
